FAERS Safety Report 16593676 (Version 3)
Quarter: 2019Q4

REPORT INFORMATION
  Report Type: Report from Study
  Country: GB (occurrence: GB)
  Receive Date: 20190718
  Receipt Date: 20191122
  Transmission Date: 20200122
  Serious: Yes (Hospitalization, Other)
  Sender: FDA-Public Use
  Company Number: PHHY2019GB150901

PATIENT
  Age: 39 Year
  Sex: Female
  Weight: 54.4 kg

DRUGS (3)
  1. HYRIMOZ [Suspect]
     Active Substance: ADALIMUMAB-ADAZ
     Dosage: UNK, Q2W (PRE-FILLED PEN)
     Route: 065
     Dates: start: 20190710
  2. HYRIMOZ [Suspect]
     Active Substance: ADALIMUMAB-ADAZ
     Dosage: UNK, Q2W (PRE-FILLED PEN)
     Route: 065
  3. HYRIMOZ [Suspect]
     Active Substance: ADALIMUMAB-ADAZ
     Indication: COLITIS ULCERATIVE
     Dosage: 40 MG, Q2W (PRE-FILLED PEN)
     Route: 058
     Dates: start: 20190611

REACTIONS (14)
  - Oral pain [Recovered/Resolved]
  - Headache [Recovered/Resolved]
  - Vision blurred [Unknown]
  - Diarrhoea [Not Recovered/Not Resolved]
  - Influenza like illness [Recovered/Resolved]
  - Haematemesis [Recovered/Resolved]
  - Gingival bleeding [Unknown]
  - Gingival pain [Recovered/Resolved]
  - Malaise [Unknown]
  - Vomiting [Unknown]
  - Maternal exposure during pregnancy [Not Recovered/Not Resolved]
  - Injection site pain [Not Recovered/Not Resolved]
  - Rectal haemorrhage [Not Recovered/Not Resolved]
  - Colitis ulcerative [Not Recovered/Not Resolved]

NARRATIVE: CASE EVENT DATE: 20190612
